FAERS Safety Report 17985624 (Version 2)
Quarter: 2020Q3

REPORT INFORMATION
  Report Type: Report from Study
  Country: CA (occurrence: CA)
  Receive Date: 20200706
  Receipt Date: 20200714
  Transmission Date: 20201103
  Serious: Yes (Other)
  Sender: FDA-Public Use
  Company Number: CA-JNJFOC-20200638221

PATIENT
  Age: 15 Year
  Sex: Male
  Weight: 58.9 kg

DRUGS (4)
  1. REMICADE [Suspect]
     Active Substance: INFLIXIMAB
     Dosage: 6.7 MG/KG
     Route: 042
     Dates: start: 20200512
  2. FERROUS GLUCONATE [Concomitant]
     Active Substance: FERROUS GLUCONATE
     Indication: PROPHYLAXIS
     Dosage: DOSE AND STRENGTH: 300 (UNITS UNSPECIFIED)
     Route: 065
  3. REMICADE [Suspect]
     Active Substance: INFLIXIMAB
     Indication: CROHN^S DISEASE
     Dosage: 6.7 MG/KG
     Route: 042
     Dates: start: 20200314
  4. REMICADE [Suspect]
     Active Substance: INFLIXIMAB
     Dosage: DOSE WAS ALSO REPORTED AS 8 MG/KG?STRENGTH: 6.6 MG/KG
     Route: 042

REACTIONS (4)
  - Abdominal distension [Unknown]
  - Arthralgia [Unknown]
  - Crohn^s disease [Not Recovered/Not Resolved]
  - Therapeutic product effect decreased [Unknown]

NARRATIVE: CASE EVENT DATE: 20200606
